FAERS Safety Report 5274090-0 (Version None)
Quarter: 2007Q1

REPORT INFORMATION
  Report Type: 
  Country: None (occurrence: None)
  Receive Date: 20070323
  Receipt Date: 20070319
  Transmission Date: 20070707
  Serious: Yes (Hospitalization)
  Sender: FDA-Public Use
  Company Number: GBWYE166610JUN03

PATIENT
  Sex: Male

DRUGS (12)
  1. NEORAL [Suspect]
     Indication: RENAL TRANSPLANT
     Dosage: UNKNOWN
     Route: 048
     Dates: start: 20020925
  2. NEORAL [Suspect]
     Indication: IMMUNOSUPPRESSANT DRUG THERAPY
  3. LISINOPRIL [Concomitant]
     Indication: HYPERTENSION
     Dosage: UNKNOWN
     Dates: start: 19990317
  4. PRAVASTATIN [Concomitant]
     Indication: HYPOCHOLESTEROLAEMIA
     Dosage: UNKNOWN
     Dates: start: 19991201
  5. FUROSEMIDE [Concomitant]
     Indication: OEDEMA PERIPHERAL
     Dosage: UNKNOWN
     Dates: start: 19971204
  6. RANITIDINE [Concomitant]
     Indication: PROPHYLAXIS AGAINST GASTROINTESTINAL ULCER
     Dosage: UNKNOWN
     Dates: start: 19970904
  7. ALENDRONATE SODIUM [Concomitant]
     Indication: OSTEOPOROSIS PROPHYLAXIS
     Dosage: UNKNOWN
     Dates: start: 20020501
  8. FERROUS SULFATE [Concomitant]
     Indication: SERUM FERRITIN DECREASED
     Dosage: UNKNOWN
     Dates: start: 20030319
  9. DOXAZOSIN MESYLATE [Concomitant]
     Indication: HYPERTENSION
     Dosage: UNKNOWN
     Dates: start: 20030319
  10. CO-CODAMOL [Concomitant]
     Indication: METATARSALGIA
     Dosage: UNKNOWN
  11. CO-CODAMOL [Concomitant]
     Indication: LIGAMENT INJURY
  12. CALCIUM ACETATE [Concomitant]
     Indication: HYPERPHOSPHATAEMIA
     Dosage: UNKNOWN
     Dates: start: 20001101

REACTIONS (1)
  - ORTHOSTATIC HYPOTENSION [None]
